FAERS Safety Report 26196491 (Version 1)
Quarter: 2025Q4

REPORT INFORMATION
  Report Type: Spontaneous
  Country: US (occurrence: US)
  Receive Date: 20251224
  Receipt Date: 20251224
  Transmission Date: 20260117
  Serious: No
  Sender: SUNOVION
  Company Number: US-SUMITOMO PHARMA SWITZERLAND GMBH-2025SPA014873

PATIENT
  Age: 68 Year
  Sex: Male

DRUGS (2)
  1. ORGOVYX [Suspect]
     Active Substance: RELUGOLIX
     Indication: Prostate cancer
     Dosage: 120 MG, QD
     Route: 048
     Dates: start: 20251103
  2. OSTEO-BI-FLEX [Concomitant]
     Dosage: UNK, QD

REACTIONS (3)
  - Fatigue [Unknown]
  - Arthralgia [Unknown]
  - Incorrect dose administered [Recovered/Resolved]
